FAERS Safety Report 5040762-6 (Version None)
Quarter: 2006Q2

REPORT INFORMATION
  Report Type: 
  Country: None (occurrence: None)
  Receive Date: 20060630
  Receipt Date: 20060630
  Transmission Date: 20061013
  Serious: No
  Sender: FDA-Public Use
  Company Number: None

PATIENT
  Sex: Male
  Weight: 96.1626 kg

DRUGS (9)
  1. PANTOPRAZOLE     40MG [Suspect]
     Indication: GASTROOESOPHAGEAL REFLUX DISEASE
     Dosage: 40MG   Q DAY  PO
     Route: 048
     Dates: start: 20060217, end: 20060331
  2. ALLOPURINOL [Concomitant]
  3. FOLIC ACID [Concomitant]
  4. FUROSEMIDE [Concomitant]
  5. SYNTHROID [Concomitant]
  6. LISINOPRIL [Concomitant]
  7. POTASSIUM CL [Concomitant]
  8. PREDNISONE [Concomitant]
  9. SIMVASTATIN [Concomitant]

REACTIONS (2)
  - CONSTIPATION [None]
  - MUSCLE SPASMS [None]
